FAERS Safety Report 6301817-9 (Version None)
Quarter: 2009Q3

REPORT INFORMATION
  Report Type: 
  Country: None (occurrence: None)
  Receive Date: 20090807
  Receipt Date: 20090805
  Transmission Date: 20100115
  Serious: Yes (Hospitalization)
  Sender: FDA-Public Use
  Company Number: US-ASTRAZENECA-2007UW03408

PATIENT
  Age: 60 Year
  Sex: Female
  Weight: 51.3 kg

DRUGS (1)
  1. SEROQUEL [Suspect]
     Indication: DEPRESSION
     Route: 048

REACTIONS (5)
  - DEHYDRATION [None]
  - DIZZINESS [None]
  - FALL [None]
  - HYPOTENSION [None]
  - SYNCOPE [None]
